FAERS Safety Report 18177770 (Version 1)
Quarter: 2020Q3

REPORT INFORMATION
  Report Type: Spontaneous
  Country: IT (occurrence: IT)
  Receive Date: 20200821
  Receipt Date: 20200821
  Transmission Date: 20201103
  Serious: Yes (Hospitalization)
  Sender: FDA-Public Use
  Company Number: IT-TEVA-2020-IT-1817907

PATIENT
  Age: 12 Year
  Sex: Male

DRUGS (1)
  1. IMATINIB. [Suspect]
     Active Substance: IMATINIB MESYLATE
     Indication: ACUTE LYMPHOCYTIC LEUKAEMIA
     Route: 065

REACTIONS (9)
  - Fibrin D dimer increased [Recovered/Resolved]
  - Musculoskeletal pain [Recovered/Resolved]
  - Thrombocytopenia [Recovered/Resolved]
  - Blood fibrinogen decreased [Unknown]
  - Cholangitis [Unknown]
  - Thrombotic microangiopathy [Unknown]
  - Petechiae [Unknown]
  - Anaemia [Unknown]
  - Puncture site haemorrhage [Unknown]
